FAERS Safety Report 9619354 (Version 2)
Quarter: 2014Q1

REPORT INFORMATION
  Report Type: Spontaneous
  Country: US (occurrence: US)
  Receive Date: 20131014
  Receipt Date: 20140318
  Transmission Date: 20141002
  Serious: Yes (Death, Hospitalization, Other)
  Sender: FDA-Public Use
  Company Number: US-NOVOPROD-389551

PATIENT
  Age: 54 Year
  Sex: Female
  Weight: 79.82 kg

DRUGS (7)
  1. VICTOZA [Suspect]
     Indication: TYPE 2 DIABETES MELLITUS
     Dosage: 0.6 MG QD
     Route: 058
     Dates: start: 20100409, end: 20100416
  2. VICTOZA [Suspect]
     Dosage: 1.2 MG, QD
     Route: 058
     Dates: start: 20100417, end: 201206
  3. XANAX [Concomitant]
     Indication: EMOTIONAL DISTRESS
     Dosage: UNKNOWN
     Dates: start: 201103
  4. XANAX [Concomitant]
     Indication: ANXIETY
  5. XANAX [Concomitant]
     Indication: STRESS
  6. XANAX [Concomitant]
     Indication: DEPRESSION
  7. XANAX [Concomitant]
     Indication: FEAR OF DEATH

REACTIONS (2)
  - Pancreatic carcinoma [Fatal]
  - Pancreatitis [Unknown]
